FAERS Safety Report 7759765-3 (Version None)
Quarter: 2011Q3

REPORT INFORMATION
  Report Type: 
  Country: None (occurrence: None)
  Receive Date: 20110919
  Receipt Date: 20110907
  Transmission Date: 20111222
  Serious: Yes (Death, Other)
  Sender: FDA-Public Use
  Company Number: PHHY2011AU80831

PATIENT
  Age: 78 Year
  Sex: Female

DRUGS (14)
  1. NITROFURANTOIN [Concomitant]
  2. ITRACONAZOLE [Concomitant]
  3. AMPHOTERICIN B [Concomitant]
     Dosage: 1 MG/KG, DAILY
  4. PREDNISOLONE [Suspect]
     Dosage: 7.5 MG, DAILY
  5. INSULIN [Concomitant]
  6. MYCOPHENOLATE MOFETIL [Suspect]
     Indication: HEART TRANSPLANT
     Dosage: 500 MG, BID
     Route: 048
  7. PREDNISOLONE [Suspect]
     Dosage: 15 MG,DAILY
  8. FLUTICASONE PROPIONATE/SALMETEROL [Concomitant]
  9. CYCLOSPORINE [Suspect]
     Indication: HEART TRANSPLANT
     Dosage: 10 MG, BID
     Route: 048
  10. METRONIDAZOLE [Concomitant]
  11. COLCHICINE [Concomitant]
  12. CIPROFLOXACIN [Concomitant]
  13. FERROUS SULFATE TAB [Concomitant]
  14. OMEPRAZOLE [Concomitant]

REACTIONS (21)
  - NAUSEA [None]
  - SKIN LESION [None]
  - RALES [None]
  - PAIN IN EXTREMITY [None]
  - VOMITING [None]
  - CONFUSIONAL STATE [None]
  - COUGH [None]
  - SPUTUM INCREASED [None]
  - SOMNOLENCE [None]
  - URINE OUTPUT DECREASED [None]
  - SYSTEMIC MYCOSIS [None]
  - BLOOD URIC ACID INCREASED [None]
  - PLEURAL EFFUSION [None]
  - LUNG INFILTRATION [None]
  - ABDOMINAL PAIN [None]
  - BODY TEMPERATURE INCREASED [None]
  - DYSPNOEA [None]
  - FLUID OVERLOAD [None]
  - OEDEMA PERIPHERAL [None]
  - CELLULITIS [None]
  - JOINT SWELLING [None]
